FAERS Safety Report 4441771-8 (Version None)
Quarter: 2004Q3

REPORT INFORMATION
  Report Type: 
  Country: None (occurrence: None)
  Receive Date: 20040907
  Receipt Date: 20040830
  Transmission Date: 20050211
  Serious: Yes (Hospitalization, Other)
  Sender: FDA-Public Use
  Company Number: PHBS2004US11519

PATIENT
  Age: 52 Year
  Sex: Male

DRUGS (4)
  1. NEORAL [Suspect]
     Indication: HEART TRANSPLANT REJECTION
     Dosage: 100 MG, Q12H
     Route: 048
  2. AZATHIOPRINE [Suspect]
     Indication: HEART TRANSPLANT
     Dosage: 150 MG, Q12H
     Route: 048
  3. PREDNISONE [Concomitant]
     Indication: HEART TRANSPLANT
     Dosage: 10 MG, QD
     Route: 048
  4. ALLOPURINOL [Suspect]
     Indication: HYPERURICAEMIA
     Dosage: 300 MG, QD
     Route: 048

REACTIONS (12)
  - BLOOD CREATININE INCREASED [None]
  - BLOOD UREA INCREASED [None]
  - DRUG INTERACTION [None]
  - FATIGUE [None]
  - HAEMATOCRIT DECREASED [None]
  - HAEMOGLOBIN DECREASED [None]
  - HYPERURICAEMIA [None]
  - NEUTROPHIL COUNT DECREASED [None]
  - PANCYTOPENIA [None]
  - PLATELET COUNT DECREASED [None]
  - PYREXIA [None]
  - WHITE BLOOD CELL COUNT DECREASED [None]
